FAERS Safety Report 15395524 (Version 1)
Quarter: 2018Q3

REPORT INFORMATION
  Report Type: Spontaneous
  Country: US (occurrence: US)
  Receive Date: 20180912
  Receipt Date: 20180912
  Transmission Date: 20181010
  Serious: Yes (Other)
  Sender: FDA-Public Use
  Company Number: None

PATIENT
  Age: 70 Year
  Sex: Male
  Weight: 72 kg

DRUGS (13)
  1. CELAXA [Concomitant]
  2. RHOPRESSA [Suspect]
     Active Substance: NETARSUDIL MESYLATE
     Indication: GLAUCOMA
     Dosage: ?          QUANTITY:1 DROP(S);?
     Route: 047
     Dates: start: 20180911, end: 20180912
  3. PROSCAR [Concomitant]
     Active Substance: FINASTERIDE
  4. TUMERIC [Concomitant]
     Active Substance: HERBALS\TURMERIC
  5. FISH OIL [Concomitant]
     Active Substance: FISH OIL
  6. OMEPRAZOL FLOMAX [Concomitant]
  7. LOSARTON [Concomitant]
  8. AZOPT TRAVATAN [Concomitant]
  9. ASPIRIN. [Concomitant]
     Active Substance: ASPIRIN
  10. BETAGON [Concomitant]
  11. CENTRUM [Concomitant]
     Active Substance: VITAMINS
  12. ALFAGON [Concomitant]
  13. COREG [Concomitant]
     Active Substance: CARVEDILOL

REACTIONS (2)
  - Vision blurred [None]
  - Hyperaemia [None]

NARRATIVE: CASE EVENT DATE: 20180912
